FAERS Safety Report 22518205 (Version 1)
Quarter: 2023Q2

REPORT INFORMATION
  Report Type: Spontaneous
  Country: US (occurrence: US)
  Receive Date: 20230605
  Receipt Date: 20230605
  Transmission Date: 20230721
  Serious: Yes (Hospitalization, Other)
  Sender: FDA-Public Use
  Company Number: US-CADILA HEALTHCARE LIMITED-US-ZYDUS-093605

PATIENT

DRUGS (4)
  1. ACETAMINOPHEN [Suspect]
     Active Substance: ACETAMINOPHEN
     Indication: Product used for unknown indication
     Dosage: UNK
     Route: 065
  2. ACETYLCYSTEINE [Suspect]
     Active Substance: ACETYLCYSTEINE
     Indication: Overdose
     Dosage: 150 MILLIGRAM/KILOGRAM
     Route: 042
  3. FOMEPIZOLE [Concomitant]
     Active Substance: FOMEPIZOLE
  4. CHARCOAL [Concomitant]
     Active Substance: ACTIVATED CHARCOAL

REACTIONS (8)
  - Hypothermia [Unknown]
  - Tachypnoea [Unknown]
  - Tachycardia [Unknown]
  - Acidosis [Unknown]
  - Hypertension [Unknown]
  - Hepatotoxicity [Unknown]
  - Overdose [Unknown]
  - Drug ineffective [Unknown]
